FAERS Safety Report 6675073-6 (Version None)
Quarter: 2010Q2

REPORT INFORMATION
  Report Type: 
  Country: None (occurrence: None)
  Receive Date: 20100409
  Receipt Date: 20100406
  Transmission Date: 20101027
  Serious: Yes (Hospitalization, Other)
  Sender: FDA-Public Use
  Company Number: US-TEVA-228745USA

PATIENT
  Age: 69 Year
  Sex: Female

DRUGS (8)
  1. LISINOPRIL TABLETS USP, 2.5MG, 5MG, 10MG, 20MG, 30MG, 40MG [Suspect]
     Indication: HYPERTENSION
     Route: 048
  2. LISINOPRIL TABLETS USP, 2.5MG, 5MG, 10MG, 20MG, 30MG, 40MG [Concomitant]
  3. OLANZAPINE [Interacting]
     Indication: BIPOLAR DISORDER
     Route: 048
  4. LITHIUM CARBONATE [Concomitant]
     Route: 048
  5. ALPRAZOLAM [Concomitant]
     Route: 048
  6. WARFARIN SODIUM [Concomitant]
     Dosage: NIGHTLY
     Route: 048
  7. LEVOTHYROXINE SODIUM [Concomitant]
     Route: 048
  8. DARIFENACIN [Concomitant]
     Route: 048

REACTIONS (2)
  - DRUG INTERACTION [None]
  - PANCREATITIS ACUTE [None]
